FAERS Safety Report 24319164 (Version 5)
Quarter: 2025Q1

REPORT INFORMATION
  Report Type: Report from Study
  Country: US (occurrence: US)
  Receive Date: 20240913
  Receipt Date: 20250220
  Transmission Date: 20250408
  Serious: Yes (Hospitalization)
  Sender: ABBVIE
  Company Number: US-ABBVIE-5917604

PATIENT
  Age: 77 Year
  Sex: Female
  Weight: 95.707 kg

DRUGS (5)
  1. VIBERZI [Suspect]
     Active Substance: ELUXADOLINE
     Indication: Irritable bowel syndrome
     Dosage: FORM STRENGTH: 100 MG END DATE:03 SEP 2024
     Route: 048
  2. VIBERZI [Suspect]
     Active Substance: ELUXADOLINE
     Indication: Irritable bowel syndrome
     Dosage: FORM STRENGTH: 100 MG
     Route: 048
     Dates: start: 20240905
  3. VALSARTAN [Concomitant]
     Active Substance: VALSARTAN
     Indication: Hypertension
  4. METOPROLOL [Concomitant]
     Active Substance: METOPROLOL
     Indication: Arrhythmia
  5. LEVOTHYROXINE [Concomitant]
     Active Substance: LEVOTHYROXINE
     Indication: Hypothyroidism
     Dosage: FORM STRENGTH:75 MICROGRAM

REACTIONS (2)
  - Ankle fracture [Recovered/Resolved]
  - Fall [Recovered/Resolved]

NARRATIVE: CASE EVENT DATE: 20240902
